FAERS Safety Report 16751593 (Version 1)
Quarter: 2019Q3

REPORT INFORMATION
  Report Type: Spontaneous
  Country: US (occurrence: US)
  Receive Date: 20190828
  Receipt Date: 20190828
  Transmission Date: 20191005
  Serious: No
  Sender: FDA-Public Use
  Company Number: US-ENDO PHARMACEUTICALS INC-2018-043164

PATIENT
  Sex: Male
  Weight: 104.31 kg

DRUGS (1)
  1. PREDNISONE. [Suspect]
     Active Substance: PREDNISONE
     Indication: RESPIRATORY TRACT INFECTION
     Dosage: UNK, UNKNOWN
     Route: 065

REACTIONS (4)
  - Chest discomfort [Unknown]
  - Anger [Unknown]
  - Dyspnoea [Unknown]
  - Anxiety [Unknown]
